FAERS Safety Report 10251954 (Version 1)
Quarter: 2014Q2

REPORT INFORMATION
  Report Type: Report from Study
  Country: US (occurrence: US)
  Receive Date: 20140623
  Receipt Date: 20140623
  Transmission Date: 20141212
  Serious: Yes (Other)
  Sender: FDA-Public Use
  Company Number: US-ROCHE-1421630

PATIENT
  Sex: Male
  Weight: 78.2 kg

DRUGS (8)
  1. NUTROPIN AQ [Suspect]
     Indication: PRODUCT USED FOR UNKNOWN INDICATION
     Route: 058
  2. TESTOSTERONE CYPIONATE [Concomitant]
     Route: 030
  3. HYDROCORTISONE [Concomitant]
     Route: 048
  4. LEVOTHYROXINE [Concomitant]
     Route: 048
  5. ALLEGRA [Concomitant]
     Route: 048
  6. COUMADIN [Concomitant]
     Route: 065
  7. ASPIRIN [Concomitant]
     Route: 048
  8. ENALAPRIL [Concomitant]
     Route: 048

REACTIONS (3)
  - Scoliosis [Unknown]
  - Blood thyroid stimulating hormone increased [Unknown]
  - Insulin-like growth factor increased [Unknown]
